FAERS Safety Report 15260316 (Version 1)
Quarter: 2018Q3

REPORT INFORMATION
  Report Type: Report from Study
  Country: IT (occurrence: IT)
  Receive Date: 20180809
  Receipt Date: 20180809
  Transmission Date: 20181010
  Serious: Yes (Other)
  Sender: FDA-Public Use
  Company Number: IT-CELGENEUS-ITA-20180710242

PATIENT

DRUGS (1)
  1. ABRAXANE [Suspect]
     Active Substance: PACLITAXEL
     Indication: DUCTAL ADENOCARCINOMA OF PANCREAS
     Route: 041

REACTIONS (5)
  - Nervous system disorder [Unknown]
  - Musculoskeletal disorder [Unknown]
  - Skin disorder [Unknown]
  - Gastrointestinal disorder [Unknown]
  - General symptom [Unknown]
